FAERS Safety Report 11771780 (Version 2)
Quarter: 2016Q1

REPORT INFORMATION
  Report Type: Spontaneous
  Country: US (occurrence: US)
  Receive Date: 20151124
  Receipt Date: 20160212
  Transmission Date: 20160525
  Serious: Yes (Other)
  Sender: FDA-Public Use
  Company Number: US-ASTRAZENECA-2015SF12035

PATIENT
  Sex: Female

DRUGS (1)
  1. SYMBICORT [Suspect]
     Active Substance: BUDESONIDE\FORMOTEROL FUMARATE DIHYDRATE
     Dosage: 160/4.5, 2 PUFFS TWICE A DAY
     Route: 055

REACTIONS (6)
  - Laryngitis [Unknown]
  - Arthritis [Unknown]
  - Device failure [Unknown]
  - Dysphonia [Unknown]
  - Visual impairment [Unknown]
  - Dyspnoea [Unknown]
